FAERS Safety Report 4918297-8 (Version None)
Quarter: 2006Q1

REPORT INFORMATION
  Report Type: 
  Country: None (occurrence: None)
  Receive Date: 20060215
  Receipt Date: 20060201
  Transmission Date: 20060701
  Serious: Yes (Hospitalization, Other)
  Sender: FDA-Public Use
  Company Number: 13398

PATIENT
  Age: 26 Year
  Sex: Female
  Weight: 82.4 kg

DRUGS (16)
  1. CYTARABINE [Suspect]
     Indication: ACUTE MYELOID LEUKAEMIA
     Dosage: 1.9 G IV
     Route: 042
     Dates: start: 20050601, end: 20050605
  2. ETOPOSIDE [Suspect]
     Indication: ACUTE MYELOID LEUKAEMIA
     Dosage: 191 MG IV
     Route: 042
     Dates: start: 20050601, end: 20050605
  3. MEROPENEM [Concomitant]
  4. SOLU-MEDROL [Concomitant]
  5. VALACYCLOVIR HCL [Concomitant]
  6. MITOXANTRONE [Suspect]
     Indication: ACUTE MYELOID LEUKAEMIA
     Dosage: 15 MG IV
     Route: 042
     Dates: start: 20050601, end: 20050605
  7. CEP-701 [Suspect]
     Indication: ACUTE MYELOID LEUKAEMIA
     Dosage: 80 MG BID PO
     Route: 048
     Dates: start: 20050613
  8. BENZONATATE [Concomitant]
  9. SEVELAMER [Concomitant]
  10. ALLOPURINOL [Concomitant]
  11. LO/OVRAL [Concomitant]
  12. ONDANSETRON [Concomitant]
  13. DILAUDID [Concomitant]
  14. MAGNESIUM PLUS PROTEIN [Concomitant]
  15. AMBISOME [Concomitant]
  16. PANTOPRAZOLE [Concomitant]

REACTIONS (6)
  - CLOSTRIDIAL INFECTION [None]
  - CULTURE STOOL POSITIVE [None]
  - ENTEROCOCCAL INFECTION [None]
  - FEBRILE NEUTROPENIA [None]
  - HEPATIC ENZYME INCREASED [None]
  - HERPES SIMPLEX [None]
